FAERS Safety Report 12605519 (Version 3)
Quarter: 2016Q4

REPORT INFORMATION
  Report Type: Report from Study
  Country: JP (occurrence: JP)
  Receive Date: 20160729
  Receipt Date: 20161014
  Transmission Date: 20170207
  Serious: Yes (Other)
  Sender: FDA-Public Use
  Company Number: JP-AMGEN-JPNCT2016098005

PATIENT
  Sex: Male
  Weight: 71.4 kg

DRUGS (14)
  1. CALCIUM LEVOFOLINATE [Concomitant]
     Active Substance: LEVOLEUCOVORIN CALCIUM
     Indication: RECTAL CANCER
     Dosage: 350 MG, Q2WEEKS
     Route: 041
     Dates: start: 20160412, end: 20160527
  2. 5-FU [Concomitant]
     Active Substance: FLUOROURACIL
     Dosage: 4400 UNK, UNK
     Route: 041
     Dates: start: 20160805
  3. 5-FU [Concomitant]
     Active Substance: FLUOROURACIL
     Dosage: 4400 UNK, UNK
     Route: 041
     Dates: start: 20160412, end: 20160527
  4. OXALIPLATIN. [Concomitant]
     Active Substance: OXALIPLATIN
     Dosage: 150 UNK, UNK
     Route: 041
     Dates: start: 20160624, end: 20160708
  5. CALCIUM LEVOFOLINATE [Concomitant]
     Active Substance: LEVOLEUCOVORIN CALCIUM
     Dosage: 350 UNK, UNK
     Route: 041
     Dates: start: 20160624, end: 20160708
  6. 5-FU [Concomitant]
     Active Substance: FLUOROURACIL
     Dosage: 700 UNK, UNK
     Route: 040
     Dates: start: 20160805
  7. PANITUMUMAB [Suspect]
     Active Substance: PANITUMUMAB
     Dosage: 420 MG, Q2WK
     Route: 041
     Dates: start: 20160624, end: 20160624
  8. 5-FU [Concomitant]
     Active Substance: FLUOROURACIL
     Dosage: 700 UNK, UNK
     Route: 040
     Dates: start: 20160624, end: 20160708
  9. 5-FU [Concomitant]
     Active Substance: FLUOROURACIL
     Dosage: 4400 UNK, UNK
     Route: 041
     Dates: start: 20160624, end: 20160708
  10. OXALIPLATIN. [Concomitant]
     Active Substance: OXALIPLATIN
     Dosage: 150 UNK, UNK
     Route: 041
     Dates: start: 20160805
  11. OXALIPLATIN. [Concomitant]
     Active Substance: OXALIPLATIN
     Indication: RECTAL CANCER
     Dosage: 150 MG, Q2WEEKS
     Route: 041
     Dates: start: 20160412, end: 20160527
  12. PANITUMUMAB [Suspect]
     Active Substance: PANITUMUMAB
     Indication: RECTAL CANCER
     Dosage: 420 MG, Q2WK
     Route: 041
     Dates: start: 20160412, end: 20160527
  13. 5-FU [Concomitant]
     Active Substance: FLUOROURACIL
     Indication: RECTAL CANCER
     Dosage: 700 MG, Q2WK
     Route: 040
     Dates: start: 20160412, end: 20160527
  14. CALCIUM LEVOFOLINATE [Concomitant]
     Active Substance: LEVOLEUCOVORIN CALCIUM
     Dosage: 350 UNK, UNK
     Route: 041
     Dates: start: 20160805

REACTIONS (9)
  - Palmar-plantar erythrodysaesthesia syndrome [Unknown]
  - Alopecia [Unknown]
  - Skin fissures [Unknown]
  - Neurotoxicity [Unknown]
  - Dry skin [Unknown]
  - Dermatitis acneiform [Unknown]
  - Dysgeusia [Unknown]
  - Pigmentation disorder [Unknown]
  - Stomatitis [Unknown]
